FAERS Safety Report 4591197-1 (Version None)
Quarter: 2005Q1

REPORT INFORMATION
  Report Type: 
  Country: None (occurrence: None)
  Receive Date: 20050222
  Receipt Date: 20050208
  Transmission Date: 20050727
  Serious: Yes (Other)
  Sender: FDA-Public Use
  Company Number: 6013079F

PATIENT
  Sex: Male

DRUGS (1)
  1. NIASPAN [Suspect]

REACTIONS (2)
  - HYPERSENSITIVITY [None]
  - SKIN EXFOLIATION [None]
